FAERS Safety Report 24959592 (Version 1)
Quarter: 2025Q1

REPORT INFORMATION
  Report Type: Spontaneous
  Country: ES (occurrence: None)
  Receive Date: 20250212
  Receipt Date: 20250212
  Transmission Date: 20250409
  Serious: Yes (Other)
  Sender: ADIENNE PHARMA & BIOTECH
  Company Number: ES-ADIENNEP-2025AD000071

PATIENT
  Sex: Female

DRUGS (3)
  1. THIOTEPA [Suspect]
     Active Substance: THIOTEPA
     Indication: Allogenic stem cell transplantation
     Dates: start: 202209
  2. BUSULFAN [Suspect]
     Active Substance: BUSULFAN
     Indication: Allogenic stem cell transplantation
     Dates: start: 202209
  3. FLUDARABINE [Suspect]
     Active Substance: FLUDARABINE PHOSPHATE
     Indication: Allogenic stem cell transplantation
     Dates: start: 202209

REACTIONS (6)
  - Obliterative bronchiolitis [Unknown]
  - Graft versus host disease [Unknown]
  - Bronchiolitis [Unknown]
  - Parainfluenzae virus infection [Unknown]
  - Disseminated aspergillosis [Unknown]
  - Aspergillus infection [Unknown]
